FAERS Safety Report 23169756 (Version 2)
Quarter: 2023Q4

REPORT INFORMATION
  Report Type: Report from Study
  Country: BR (occurrence: BR)
  Receive Date: 20231110
  Receipt Date: 20231116
  Transmission Date: 20240109
  Serious: Yes (Other)
  Sender: FDA-Public Use
  Company Number: BR-CELLTRION INC.-2023BR021681

PATIENT

DRUGS (7)
  1. INFLIXIMAB [Suspect]
     Active Substance: INFLIXIMAB
     Indication: Rheumatoid arthritis
     Dosage: UNK
     Route: 042
     Dates: start: 20230117
  2. INFLIXIMAB [Suspect]
     Active Substance: INFLIXIMAB
     Dosage: UNK
     Route: 042
     Dates: start: 20230914
  3. INFLIXIMAB [Suspect]
     Active Substance: INFLIXIMAB
     Dosage: UNK
     Route: 042
     Dates: start: 20231009
  4. SPIRONOLACTONE [Concomitant]
     Active Substance: SPIRONOLACTONE
     Indication: Hypertension
     Dosage: 2 PILLS A DAY
     Route: 048
     Dates: start: 202309
  5. ROSUVASTATIN [Concomitant]
     Active Substance: ROSUVASTATIN
     Indication: Hypertension
     Dosage: 2 PILLS A DAY
     Route: 048
     Dates: start: 202309
  6. LOXOPROFEN SODIUM [Concomitant]
     Active Substance: LOXOPROFEN SODIUM
     Indication: Rheumatic disorder
     Dosage: 2 PILLS A DAY
     Route: 048
     Dates: start: 202309
  7. METFORMIN [Concomitant]
     Active Substance: METFORMIN HYDROCHLORIDE
     Indication: Diabetes mellitus
     Dosage: 2 PILLS A DAY
     Route: 048
     Dates: start: 202309

REACTIONS (7)
  - Diabetes mellitus [Recovering/Resolving]
  - Neuropathy peripheral [Recovering/Resolving]
  - Cardiomegaly [Recovering/Resolving]
  - Loss of personal independence in daily activities [Recovering/Resolving]
  - Vasodilatation [Recovering/Resolving]
  - Pain in extremity [Recovering/Resolving]
  - Visual impairment [Recovering/Resolving]
